FAERS Safety Report 17005605 (Version 1)
Quarter: 2019Q4

REPORT INFORMATION
  Report Type: Spontaneous
  Country: US (occurrence: US)
  Receive Date: 20191107
  Receipt Date: 20191107
  Transmission Date: 20200122
  Serious: No
  Sender: FDA-Public Use
  Company Number: US-ASTRAZENECA-2019SF44330

PATIENT
  Sex: Male

DRUGS (10)
  1. GIPURIDE [Concomitant]
     Indication: DIABETES MELLITUS
  2. DIGOXIN. [Concomitant]
     Active Substance: DIGOXIN
  3. POTASSIUM CLORIDE [Concomitant]
  4. BYDUREON [Suspect]
     Active Substance: EXENATIDE
     Indication: DIABETES MELLITUS
     Route: 065
  5. LIPITOR [Concomitant]
     Active Substance: ATORVASTATIN CALCIUM
  6. FLUROSEMIDE [Concomitant]
  7. PRADIXA [Concomitant]
  8. COREG [Concomitant]
     Active Substance: CARVEDILOL
  9. METFORMIN [Concomitant]
     Active Substance: METFORMIN HYDROCHLORIDE
     Indication: DIABETES MELLITUS
  10. ALLOPURINAL [Concomitant]
     Active Substance: ALLOPURINOL
     Indication: GOUT

REACTIONS (3)
  - Device issue [Unknown]
  - Injection site extravasation [Unknown]
  - Incorrect dose administered by device [Unknown]
